FAERS Safety Report 5587540-7 (Version None)
Quarter: 2008Q1

REPORT INFORMATION
  Report Type: 
  Country: None (occurrence: None)
  Receive Date: 20080107
  Receipt Date: 20071227
  Transmission Date: 20080703
  Serious: Yes (Hospitalization)
  Sender: FDA-Public Use
  Company Number: 2007-04362

PATIENT
  Age: 57 Year
  Sex: Male
  Weight: 70 kg

DRUGS (9)
  1. VELCADE [Suspect]
     Indication: MULTIPLE MYELOMA
     Dosage: 1.85 MG, INTRAVENOUS
     Route: 042
     Dates: start: 20070504, end: 20070514
  2. PREVISCAN (FLUINDIONE) [Concomitant]
  3. KETAMINE HCL [Concomitant]
  4. DURAGESIC-100 [Concomitant]
  5. ACETAMINOPHEN [Concomitant]
  6. OXYCODONE HCL [Concomitant]
  7. ZOLPIDEM TARTRATE [Concomitant]
  8. VITAMIN B-KOMPLEX FORTE-RATIOPHARM (PYRIDOXINE HYDROCHLORIDE, THIAMINE [Concomitant]
  9. NEURONTIN [Concomitant]

REACTIONS (2)
  - DRUG INTERACTION [None]
  - INTERNATIONAL NORMALISED RATIO INCREASED [None]
